FAERS Safety Report 6581500-5 (Version None)
Quarter: 2010Q1

REPORT INFORMATION
  Report Type: 
  Country: None (occurrence: None)
  Receive Date: 20100215
  Receipt Date: 20100212
  Transmission Date: 20100710
  Serious: Yes (Life-Threatening, Hospitalization)
  Sender: FDA-Public Use
  Company Number: B0633086A

PATIENT
  Sex: Female

DRUGS (3)
  1. CLAMOXYL [Suspect]
     Indication: TOOTH ABSCESS
     Dosage: 1UNIT SINGLE DOSE
     Route: 048
     Dates: start: 20050620, end: 20050620
  2. PARACETAMOL [Concomitant]
     Indication: TOOTH ABSCESS
     Route: 065
     Dates: start: 20050620
  3. CLIMASTON [Concomitant]
     Indication: MENOPAUSE
     Route: 065

REACTIONS (9)
  - ANAPHYLACTIC SHOCK [None]
  - BRADYCARDIA [None]
  - ELECTROCARDIOGRAM P WAVE ABNORMAL [None]
  - ERYTHEMA [None]
  - FLUSHING [None]
  - HYPOTENSION [None]
  - MALAISE [None]
  - TINNITUS [None]
  - VENTRICULAR EXTRASYSTOLES [None]
